FAERS Safety Report 8488051-1 (Version None)
Quarter: 2012Q3

REPORT INFORMATION
  Report Type: 
  Country: None (occurrence: None)
  Receive Date: 20120705
  Receipt Date: 20120622
  Transmission Date: 20120928
  Serious: Yes (Hospitalization, Other)
  Sender: FDA-Public Use
  Company Number: CA-CELGENEUS-028-21880-12023087

PATIENT
  Sex: Male

DRUGS (11)
  1. REVLIMID [Suspect]
     Dosage: 20 MILLIGRAM
     Route: 048
     Dates: start: 20111219, end: 20120105
  2. DEXAMETHASONE SODIUM PHOSPHATE [Concomitant]
     Indication: MULTIPLE MYELOMA
     Dosage: 40 MILLIGRAM
     Route: 065
  3. COUMADIN [Concomitant]
     Route: 065
  4. CYCLOPHOSPHAMIDE [Concomitant]
     Route: 065
     Dates: start: 20100101
  5. THALOMID [Suspect]
     Indication: MULTIPLE MYELOMA
     Dosage: 50MG-100MG
     Route: 048
     Dates: start: 20100910, end: 20110701
  6. REVLIMID [Suspect]
     Dosage: 15 MILLIGRAM
     Route: 048
     Dates: start: 20120201
  7. RANITIDINE [Concomitant]
     Dosage: 150 MILLIGRAM
     Route: 065
     Dates: end: 20120213
  8. REVLIMID [Suspect]
     Indication: MULTIPLE MYELOMA
     Dosage: 25 MILLIGRAM
     Route: 048
     Dates: start: 20111101
  9. THALOMID [Suspect]
     Dosage: 50 MILLIGRAM
     Route: 048
     Dates: start: 20110701, end: 20111101
  10. PANTOPRAZOLE [Concomitant]
     Dosage: 40 MILLIGRAM
     Route: 065
  11. PAMIDRONATE DISODIUM [Concomitant]
     Route: 065

REACTIONS (15)
  - ATRIAL FIBRILLATION [None]
  - ANAEMIA [None]
  - UPPER RESPIRATORY TRACT INFECTION [None]
  - NAUSEA [None]
  - DIARRHOEA [None]
  - MUSCLE SPASMS [None]
  - PNEUMONIA [None]
  - DYSPEPSIA [None]
  - ABDOMINAL PAIN [None]
  - PNEUMONIA STREPTOCOCCAL [None]
  - HAEMORRHOIDS [None]
  - ORAL PAIN [None]
  - NEPHROLITHIASIS [None]
  - NEUROPATHY PERIPHERAL [None]
  - MULTIPLE MYELOMA [None]
